FAERS Safety Report 21024412 (Version 3)
Quarter: 2022Q3

REPORT INFORMATION
  Report Type: Spontaneous
  Country: FR (occurrence: FR)
  Receive Date: 20220629
  Receipt Date: 20220916
  Transmission Date: 20221027
  Serious: Yes (Death, Hospitalization, Other)
  Sender: FDA-Public Use
  Company Number: None

PATIENT
  Age: 80 Year
  Sex: Female
  Weight: 55 kg

DRUGS (9)
  1. COMIRNATY [Suspect]
     Active Substance: TOZINAMERAN
     Indication: COVID-19 immunisation
     Dosage: DOSE 1, 30 UG SINGLE
     Route: 030
     Dates: start: 20210927, end: 20210927
  2. GEMCITABINE HYDROCHLORIDE [Suspect]
     Active Substance: GEMCITABINE HYDROCHLORIDE
     Indication: Chemotherapy
     Dosage: 1 DF, WEEKLY
     Route: 051
     Dates: start: 202108, end: 20210923
  3. LEVOTHYROXINE [Concomitant]
     Active Substance: LEVOTHYROXINE
     Dosage: 1 TABLET MONDAY, WEDNESDAY AND FRIDAY
  4. LEVOTHYROXINE [Concomitant]
     Active Substance: LEVOTHYROXINE
     Dosage: 1 TABLET TUESDAY, THURSDAY, SATURDAY AND SUNDAY
  5. PROTHIADEN [Concomitant]
     Active Substance: DOTHIEPIN HYDROCHLORIDE
     Dosage: 25MG, DAILY, 3 DAYS/WEEK
  6. EPREX [Concomitant]
     Active Substance: ERYTHROPOIETIN
     Dosage: 40000 IU, WEEKLY
     Route: 058
  7. CLINUTREN DESSERT GOURMAND [Concomitant]
     Dosage: 2 DF, DAILY
  8. ONDANSETRON [Concomitant]
     Active Substance: ONDANSETRON
     Dosage: 8MG, 2X/DAY, MORNING AND EVENING
  9. VOGALENE [Concomitant]
     Active Substance: METOPIMAZINE
     Dosage: 1 TABLET, 3X/DAY IF NAUSEA

REACTIONS (10)
  - General physical health deterioration [Fatal]
  - Decreased appetite [Fatal]
  - Hypertension [Not Recovered/Not Resolved]
  - Motor dysfunction [Unknown]
  - Cerebrovascular accident [Unknown]
  - Metastases to central nervous system [Unknown]
  - Deafness [Unknown]
  - Oedema peripheral [Unknown]
  - Language disorder [Unknown]
  - Nausea [Unknown]

NARRATIVE: CASE EVENT DATE: 20211014
